FAERS Safety Report 21513580 (Version 2)
Quarter: 2022Q4

REPORT INFORMATION
  Report Type: Spontaneous
  Country: BE (occurrence: BE)
  Receive Date: 20221027
  Receipt Date: 20221114
  Transmission Date: 20230113
  Serious: Yes (Other)
  Sender: FDA-Public Use
  Company Number: BE-VIIV HEALTHCARE LIMITED-BE2022EME151903

PATIENT

DRUGS (5)
  1. VOCABRIA [Suspect]
     Active Substance: CABOTEGRAVIR SODIUM
     Indication: Product used for unknown indication
     Dosage: UNK
     Dates: start: 20220519
  2. RILPIVIRINE [Suspect]
     Active Substance: RILPIVIRINE
     Indication: Product used for unknown indication
     Dosage: UNK
     Dates: start: 20220519
  3. HEPATITIS B VIRUS VACCINE [Suspect]
     Active Substance: HEPATITIS B VIRUS VACCINE
     Indication: Prophylaxis
     Dates: start: 202208
  4. VOCABRIA [Concomitant]
     Active Substance: CABOTEGRAVIR SODIUM
     Indication: Product used for unknown indication
     Dosage: UNK
     Route: 048
     Dates: start: 2022, end: 202204
  5. EDURANT [Concomitant]
     Active Substance: RILPIVIRINE HYDROCHLORIDE
     Indication: Product used for unknown indication
     Dosage: UNK
     Route: 048
     Dates: start: 2022, end: 202204

REACTIONS (5)
  - Pathogen resistance [Unknown]
  - Viral mutation identified [Unknown]
  - Viral load increased [Unknown]
  - Discomfort [Recovering/Resolving]
  - Pain [Recovering/Resolving]

NARRATIVE: CASE EVENT DATE: 20220101
